FAERS Safety Report 8523956-4 (Version None)
Quarter: 2012Q3

REPORT INFORMATION
  Report Type: 
  Country: None (occurrence: None)
  Receive Date: 20120720
  Receipt Date: 20120416
  Transmission Date: 20120928
  Serious: No
  Sender: FDA-Public Use
  Company Number: CO-SANOFI-AVENTIS-2011SA051747

PATIENT
  Age: 30 Year
  Sex: Female

DRUGS (6)
  1. METHYLPREDNISOLONE [Concomitant]
     Route: 048
     Dates: start: 20110303, end: 20110715
  2. FOLIC ACID [Concomitant]
     Route: 048
     Dates: start: 20110218, end: 20110810
  3. DEFLAZACORT [Concomitant]
  4. CALCITRIOL [Concomitant]
  5. ARAVA [Suspect]
     Dosage: 100 MG PER DAY FOR FIRST THREE DAYS AND THEN CONTINUES WITH 20 MG PER DAY.
     Route: 048
     Dates: start: 20110513, end: 20110515
  6. ARAVA [Suspect]
     Route: 048
     Dates: start: 20110516, end: 20110722

REACTIONS (1)
  - MATERNAL EXPOSURE DURING PREGNANCY [None]
